FAERS Safety Report 10043282 (Version 6)
Quarter: 2015Q1

REPORT INFORMATION
  Report Type: Report from Study
  Country: CA (occurrence: CA)
  Receive Date: 20140328
  Receipt Date: 20150206
  Transmission Date: 20150720
  Serious: Yes (Other)
  Sender: FDA-Public Use
  Company Number: PHHY2014CA032168

PATIENT
  Age: 74 Year
  Sex: Male

DRUGS (1)
  1. GLIVEC [Suspect]
     Active Substance: IMATINIB MESYLATE
     Indication: CHRONIC MYELOID LEUKAEMIA
     Dosage: 400 MG, QD
     Route: 048
     Dates: start: 201107

REACTIONS (14)
  - Neoplasm skin [Unknown]
  - Rectal polyp [Unknown]
  - Erythema [Unknown]
  - Blood iron decreased [Unknown]
  - Second primary malignancy [Unknown]
  - Serum ferritin decreased [Unknown]
  - Frequent bowel movements [Unknown]
  - Colon adenoma [Recovered/Resolved]
  - Precancerous cells present [Recovered/Resolved]
  - Haematochezia [Unknown]
  - Colon dysplasia [Recovered/Resolved]
  - Polyp [Recovered/Resolved]
  - Diverticulum intestinal [Unknown]
  - Large intestine polyp [Unknown]

NARRATIVE: CASE EVENT DATE: 20140224
